FAERS Safety Report 6042251-9 (Version None)
Quarter: 2009Q1

REPORT INFORMATION
  Report Type: 
  Country: None (occurrence: None)
  Receive Date: 20090116
  Receipt Date: 20081220
  Transmission Date: 20090719
  Serious: No
  Sender: FDA-Public Use
  Company Number: FI-PFIZER INC-2008093706

PATIENT
  Age: 81 Year
  Sex: Female

DRUGS (1)
  1. XALATAN [Suspect]
     Route: 047
     Dates: start: 20081029

REACTIONS (2)
  - FOREIGN BODY IN EYE [None]
  - LACRIMATION INCREASED [None]
